FAERS Safety Report 7770138-X (Version None)
Quarter: 2011Q3

REPORT INFORMATION
  Report Type: 
  Country: None (occurrence: None)
  Receive Date: 20110922
  Receipt Date: 20100517
  Transmission Date: 20111222
  Serious: No
  Sender: FDA-Public Use
  Company Number: US-ASTRAZENECA-2010SE46361

PATIENT
  Age: 27 Year
  Sex: Female

DRUGS (12)
  1. SEROQUEL [Suspect]
     Dosage: 25 MG TO 200 MG.
     Route: 048
     Dates: start: 20021010
  2. PREDNISONE [Concomitant]
     Dates: start: 20030422
  3. BIAXIN XL [Concomitant]
     Dates: start: 20030422
  4. CYCLOPHOSPHAMIDE [Concomitant]
     Dates: start: 20021009
  5. IBUPROFEN [Concomitant]
     Dates: start: 20021009
  6. LITHIUM CARBONATE [Concomitant]
     Dates: start: 20021010
  7. RANITIDINE [Concomitant]
     Dates: start: 20021221
  8. TRIPHASIL-28 [Concomitant]
     Dates: start: 20021227
  9. AMOX/CLAVULANATE [Concomitant]
     Dates: start: 20030304
  10. ABILIFY [Concomitant]
     Dates: start: 20030117
  11. DEPO-PROVERA [Concomitant]
     Dosage: 150 MG/ML SY
     Dates: start: 20030203
  12. METFORMIN HCL [Concomitant]
     Dates: start: 20030314

REACTIONS (3)
  - MIGRAINE [None]
  - HAEMORRHAGE [None]
  - MENSTRUATION IRREGULAR [None]
